FAERS Safety Report 6644655-X (Version None)
Quarter: 2010Q1

REPORT INFORMATION
  Report Type: 
  Country: None (occurrence: None)
  Receive Date: 20100322
  Receipt Date: 20100315
  Transmission Date: 20100710
  Serious: Yes (Other)
  Sender: FDA-Public Use
  Company Number: JP-MERCK-1003USA02782

PATIENT
  Age: 85 Year
  Sex: Male

DRUGS (5)
  1. PEPCID [Suspect]
     Route: 048
  2. THEOPHYLLINE [Concomitant]
     Route: 048
  3. ERYTHROMYCIN [Concomitant]
     Route: 048
  4. NIFEDIPINE [Concomitant]
     Route: 048
  5. FLUVOXAMINE MALEATE [Concomitant]
     Indication: DEPRESSED MOOD
     Route: 048

REACTIONS (1)
  - DRUG TOXICITY [None]
